FAERS Safety Report 9695943 (Version 4)
Quarter: 2015Q1

REPORT INFORMATION
  Report Type: Report from Study
  Country: DE (occurrence: DE)
  Receive Date: 20131119
  Receipt Date: 20150220
  Transmission Date: 20150721
  Serious: Yes (Hospitalization)
  Sender: FDA-Public Use
  Company Number: DE-INCYTE CORPORATION-2013IN000377

PATIENT
  Sex: Female
  Weight: 60 kg

DRUGS (16)
  1. RAMIPRIL PLUS [Concomitant]
     Active Substance: RAMIPRIL
     Dosage: 5 MG / 12.5 MG  X 1 DF PER DAY
     Route: 065
     Dates: start: 20121130
  2. NOVAMINSULFON [Concomitant]
     Active Substance: METAMIZOLE
     Indication: PAIN
     Dosage: 40 DRP, 4X PER DAY
     Route: 065
     Dates: start: 20121017
  3. MCP [Concomitant]
     Active Substance: METOCLOPRAMIDE HYDROCHLORIDE
     Indication: GASTROINTESTINAL OBSTRUCTION
     Dosage: 20 DRP, TID
     Route: 065
     Dates: start: 20130917
  4. RAMIPRIL. [Concomitant]
     Active Substance: RAMIPRIL
     Indication: HYPERTENSION
     Dosage: 5 OT, QD
     Route: 065
     Dates: start: 20121031
  5. INCB018424 [Suspect]
     Active Substance: RUXOLITINIB
     Dosage: 20 MG X 2 DF PER DAY
     Route: 048
     Dates: start: 20130526, end: 20130826
  6. OXYGESIC [Concomitant]
     Active Substance: OXYCODONE
     Indication: MYELOFIBROSIS
     Dosage: 10 OT, BID
     Route: 065
     Dates: start: 20121205
  7. BAYOTENSIN AKUT [Concomitant]
     Indication: HYPERTENSION
     Dosage: UNK UNK, PRN
     Route: 065
     Dates: start: 20130806
  8. INCB018424 [Suspect]
     Active Substance: RUXOLITINIB
     Dosage: 20 X 1 DF PER DAY
     Route: 048
     Dates: start: 20130827, end: 20130906
  9. INCB018424 [Suspect]
     Active Substance: RUXOLITINIB
     Indication: MYELOFIBROSIS
     Dosage: 20 MG X 2 DF PER DAY
     Route: 048
     Dates: start: 20121031, end: 20121125
  10. BISOPROLOL [Concomitant]
     Active Substance: BISOPROLOL
     Indication: HYPERTENSION
     Dosage: 5 OT, BID
     Route: 048
     Dates: start: 20121017
  11. BISOPROLOL [Concomitant]
     Active Substance: BISOPROLOL
     Dosage: 10 MG QD
     Route: 048
     Dates: start: 20121130
  12. RAMIPRIL PLUS [Concomitant]
     Active Substance: RAMIPRIL
     Indication: HYPERTENSION
     Dosage: 5 MG / 12.5 MG  X 1 DF PER DAY
     Route: 065
     Dates: start: 20121017
  13. VERGENTAN [Concomitant]
     Indication: NAUSEA
     Dosage: 150 MG, QD
     Route: 065
     Dates: start: 20130521, end: 20130525
  14. INCB018424 [Suspect]
     Active Substance: RUXOLITINIB
     Dosage: 20 MG X 2 DF PER DAY
     Route: 048
     Dates: start: 20121201, end: 20130520
  15. RAMIPRIL. [Concomitant]
     Active Substance: RAMIPRIL
     Dosage: 5 MG, PER DAY
     Route: 065
     Dates: start: 20121130
  16. HALOPERIDOL. [Concomitant]
     Active Substance: HALOPERIDOL
     Indication: MYELOFIBROSIS
     Dosage: 3 DRP, TID
     Route: 065
     Dates: start: 20121205

REACTIONS (2)
  - Hypertensive crisis [Recovered/Resolved]
  - Hypertensive crisis [Recovered/Resolved]

NARRATIVE: CASE EVENT DATE: 20121125
